FAERS Safety Report 5322346-5 (Version None)
Quarter: 2007Q2

REPORT INFORMATION
  Report Type: 
  Country: None (occurrence: None)
  Receive Date: 20070511
  Receipt Date: 20070505
  Transmission Date: 20071010
  Serious: Yes (Hospitalization)
  Sender: FDA-Public Use
  Company Number: US-ELI_LILLY_AND_COMPANY-US200705001582

PATIENT
  Age: 62 Year
  Sex: Female
  Weight: 131.52 kg

DRUGS (8)
  1. BYETTA [Suspect]
     Indication: DIABETES MELLITUS NON-INSULIN-DEPENDENT
     Dosage: 10 UG, 2/D
     Route: 058
     Dates: start: 20070101
  2. ACTOS [Concomitant]
     Indication: DIABETES MELLITUS NON-INSULIN-DEPENDENT
     Dosage: 30 MG, DAILY (1/D)
     Route: 048
     Dates: start: 20040101
  3. DEMADEX [Concomitant]
     Indication: FLUID RETENTION
     Dosage: 10 MG, DAILY (1/D)
     Route: 048
  4. ACCUPRIL [Concomitant]
     Indication: HYPERTENSION
     Dosage: UNK, DAILY (1/D)
     Route: 048
  5. DIGOXIN [Concomitant]
     Indication: CARDIAC DISORDER
     Dosage: 0.125 MG, DAILY (1/D)
     Route: 048
  6. TIAZAC [Concomitant]
     Indication: CARDIAC DISORDER
     Dosage: UNK, UNKNOWN
  7. ASCORBIC ACID [Concomitant]
     Dosage: UNK, UNKNOWN
  8. MULTI-VITAMIN [Concomitant]
     Dosage: UNK, UNKNOWN

REACTIONS (7)
  - DRUG INTERACTION [None]
  - DYSPNOEA [None]
  - FALL [None]
  - LIMB CRUSHING INJURY [None]
  - MOBILITY DECREASED [None]
  - OEDEMA PERIPHERAL [None]
  - WEIGHT INCREASED [None]
